FAERS Safety Report 9564346 (Version 1)
Quarter: 2013Q3

REPORT INFORMATION
  Report Type: Spontaneous
  Country: US (occurrence: US)
  Receive Date: 20130930
  Receipt Date: 20130930
  Transmission Date: 20140515
  Serious: Yes (Hospitalization)
  Sender: FDA-Public Use
  Company Number: US-BIOGENIDEC-2013BI091830

PATIENT
  Age: 43 Year
  Sex: Male

DRUGS (1)
  1. AVONEX [Suspect]
     Indication: MULTIPLE SCLEROSIS
     Route: 030
     Dates: start: 20110727, end: 201211

REACTIONS (5)
  - Arthritis infective [Recovered/Resolved]
  - Localised infection [Recovered/Resolved]
  - Blood iron decreased [Recovered/Resolved]
  - Blood glucose increased [Recovered/Resolved]
  - Muscle spasms [Recovered/Resolved]
